FAERS Safety Report 13226876 (Version 1)
Quarter: 2017Q1

REPORT INFORMATION
  Report Type: Spontaneous
  Country: US (occurrence: US)
  Receive Date: 20170213
  Receipt Date: 20170213
  Transmission Date: 20170428
  Serious: Yes (Other)
  Sender: FDA-Public Use
  Company Number: US-SMITH AND NEPHEW, INC-2017SMT00079

PATIENT
  Age: 86 Year
  Sex: Female
  Weight: 70.75 kg

DRUGS (5)
  1. UNSPECIFIED OTHER MEDICATIONS [Concomitant]
     Active Substance: UNSPECIFIED INGREDIENT
  2. ISOSORBIDE. [Concomitant]
     Active Substance: ISOSORBIDE
  3. GABAPENTIN. [Concomitant]
     Active Substance: GABAPENTIN
  4. REGRANEX [Suspect]
     Active Substance: BECAPLERMIN
     Indication: DIABETIC ULCER
     Dosage: UNK UNK, 1X/DAY FOR 12 HOURS ON AND 12 HOURS OFF
     Route: 061
     Dates: start: 2016
  5. UNSPECIFIED OTC SUPPLEMENTS [Concomitant]

REACTIONS (8)
  - Blood glucose increased [Recovered/Resolved]
  - Pain in extremity [Not Recovered/Not Resolved]
  - Peripheral vascular disorder [Unknown]
  - Onychomadesis [Not Recovered/Not Resolved]
  - Arthralgia [Not Recovered/Not Resolved]
  - Scab [Not Recovered/Not Resolved]
  - Nail discolouration [Not Recovered/Not Resolved]
  - Blood potassium [Recovered/Resolved]

NARRATIVE: CASE EVENT DATE: 201701
